FAERS Safety Report 16839091 (Version 1)
Quarter: 2019Q3

REPORT INFORMATION
  Report Type: Spontaneous
  Country: US (occurrence: US)
  Receive Date: 20190731
  Receipt Date: 20190731
  Transmission Date: 20191005
  Serious: No
  Sender: FDA-Public Use
  Company Number: None

PATIENT

DRUGS (2)
  1. METFORMIN HCL [Suspect]
     Active Substance: METFORMIN HYDROCHLORIDE
     Route: 048
  2. METFORMIN HCL [Suspect]
     Active Substance: METFORMIN HYDROCHLORIDE
     Route: 048

REACTIONS (8)
  - Accidental overdose [None]
  - Product communication issue [None]
  - Ill-defined disorder [None]
  - Abdominal pain [None]
  - Nausea [None]
  - Impaired work ability [None]
  - Gastrointestinal disorder [None]
  - Diarrhoea [None]
